FAERS Safety Report 20663543 (Version 1)
Quarter: 2022Q2

REPORT INFORMATION
  Report Type: Spontaneous
  Country: US (occurrence: US)
  Receive Date: 20220401
  Receipt Date: 20220401
  Transmission Date: 20220721
  Serious: No
  Sender: FDA-Public Use
  Company Number: US-BIOVITRUM-2022US04257

PATIENT
  Age: 0 Year
  Sex: Male
  Weight: 6 kg

DRUGS (5)
  1. SYNAGIS [Suspect]
     Active Substance: PALIVIZUMAB
     Indication: Bronchopulmonary dysplasia
     Route: 030
     Dates: start: 202110
  2. SYNAGIS [Suspect]
     Active Substance: PALIVIZUMAB
     Indication: Premature baby
  3. EPINEPHRINE [Concomitant]
     Active Substance: EPINEPHRINE
  4. VITAMINS [Concomitant]
     Active Substance: VITAMINS
  5. SYNAGIS [Suspect]
     Active Substance: PALIVIZUMAB
     Indication: Cardiac murmur

REACTIONS (2)
  - Illness [Unknown]
  - Product dose omission issue [Unknown]

NARRATIVE: CASE EVENT DATE: 20220301
